FAERS Safety Report 7342871-5 (Version None)
Quarter: 2011Q1

REPORT INFORMATION
  Report Type: 
  Country: None (occurrence: None)
  Receive Date: 20110302
  Receipt Date: 20110215
  Transmission Date: 20110831
  Serious: Yes (Life-Threatening, Hospitalization, Other)
  Sender: FDA-Public Use
  Company Number: AUR-APL-2011-00207

PATIENT
  Age: 34 Year
  Sex: Male

DRUGS (7)
  1. PERINDOPRIL ERBUMINE [Suspect]
     Indication: INTENTIONAL OVERDOSE
  2. CITALOPRAM HYDROBROMIDE [Suspect]
     Indication: INTENTIONAL OVERDOSE
     Dosage: 240 MG,
  3. DIAZEPAM [Suspect]
     Indication: INTENTIONAL OVERDOSE
     Dosage: 140MG,
  4. AMLODIPINE BESYLATE [Suspect]
     Indication: INTENTIONAL OVERDOSE
  5. ACETAMINOPHEN W/ CODEINE [Suspect]
     Indication: INTENTIONAL OVERDOSE
  6. DOXAZOSIN MESYLATE [Suspect]
     Indication: INTENTIONAL OVERDOSE
  7. TEMAZEPAM [Suspect]
     Indication: INTENTIONAL OVERDOSE

REACTIONS (17)
  - HYPOXIA [None]
  - RENAL FAILURE [None]
  - HYPOKALAEMIA [None]
  - BLOOD LACTIC ACID INCREASED [None]
  - TOXICITY TO VARIOUS AGENTS [None]
  - METABOLIC ACIDOSIS [None]
  - CRYSTALLURIA [None]
  - CHEMICAL POISONING [None]
  - MULTIPLE DRUG OVERDOSE INTENTIONAL [None]
  - LOSS OF CONSCIOUSNESS [None]
  - OSMOLAR GAP ABNORMAL [None]
  - CONTINUOUS HAEMODIAFILTRATION [None]
  - MULTIPLE-DRUG RESISTANCE [None]
  - THROMBOSIS IN DEVICE [None]
  - HEART RATE INCREASED [None]
  - HYPOTENSION [None]
  - ANION GAP INCREASED [None]
